FAERS Safety Report 7096795-1 (Version None)
Quarter: 2010Q4

REPORT INFORMATION
  Report Type: 
  Country: None (occurrence: None)
  Receive Date: 20101111
  Receipt Date: 20101103
  Transmission Date: 20110411
  Serious: No
  Sender: FDA-Public Use
  Company Number: US-B.I. PHARMACEUTICALS,INC./RIDGEFIELD-2010-BP-12373BP

PATIENT
  Sex: Male

DRUGS (1)
  1. ZANTAC [Suspect]
     Dosage: 150 MG
     Route: 048
     Dates: start: 20101103

REACTIONS (1)
  - MUSCULOSKELETAL PAIN [None]
